FAERS Safety Report 5398815-9 (Version None)
Quarter: 2007Q3

REPORT INFORMATION
  Report Type: 
  Country: None (occurrence: None)
  Receive Date: 20070725
  Receipt Date: 20070725
  Transmission Date: 20080115
  Serious: No
  Sender: FDA-Public Use
  Company Number: None

PATIENT
  Age: 51 Year
  Sex: Female
  Weight: 135.1719 kg

DRUGS (2)
  1. LIPITOR [Suspect]
     Indication: ILL-DEFINED DISORDER
     Dosage: 40 MG 1 QD PO
     Route: 048
     Dates: start: 20021202, end: 20030320
  2. LIPITOR [Suspect]
     Dosage: 20MG 1QD PO
     Route: 048
     Dates: start: 20030401, end: 20041213

REACTIONS (1)
  - THYMUS ENLARGEMENT [None]
